FAERS Safety Report 6463450-8 (Version None)
Quarter: 2009Q4

REPORT INFORMATION
  Report Type: 
  Country: None (occurrence: None)
  Receive Date: 20091201
  Receipt Date: 20091004
  Transmission Date: 20100525
  Serious: Yes (Hospitalization)
  Sender: FDA-Public Use
  Company Number: US-AMGEN-QUU367571

PATIENT
  Sex: Female

DRUGS (2)
  1. ENBREL [Suspect]
     Indication: PSORIATIC ARTHROPATHY
     Route: 058
     Dates: start: 20050101
  2. ENBREL [Suspect]
     Indication: PSORIASIS

REACTIONS (4)
  - INJECTION SITE PAIN [None]
  - MOBILITY DECREASED [None]
  - PAIN [None]
  - PSORIASIS [None]
